FAERS Safety Report 7541673-4 (Version None)
Quarter: 2011Q2

REPORT INFORMATION
  Report Type: 
  Country: None (occurrence: None)
  Receive Date: 20110613
  Receipt Date: 20110603
  Transmission Date: 20111010
  Serious: Yes (Hospitalization)
  Sender: FDA-Public Use
  Company Number: JP-JNJFOC-20110406781

PATIENT
  Sex: Female
  Weight: 46 kg

DRUGS (9)
  1. DOXIL [Suspect]
     Dosage: CYCLE 2
     Route: 042
     Dates: start: 20110519, end: 20110519
  2. DOXIL [Suspect]
     Indication: OVARIAN CANCER
     Dosage: CYCLE 1
     Route: 042
     Dates: start: 20110407, end: 20110407
  3. CARBOPLATIN [Concomitant]
     Route: 041
  4. KYTRIL [Concomitant]
     Indication: VOMITING
     Route: 041
     Dates: start: 20110407, end: 20110407
  5. DECADRON [Concomitant]
     Indication: VOMITING
     Route: 041
     Dates: start: 20110407, end: 20110407
  6. NEUROVITAN [Concomitant]
     Indication: PROPHYLAXIS
     Route: 048
     Dates: start: 20110407
  7. CLOBETASOL PROPIONATE [Concomitant]
     Indication: PRURITUS
     Route: 061
     Dates: start: 20110408
  8. MUCOSTA [Concomitant]
     Indication: PROPHYLAXIS
     Route: 048
     Dates: start: 20110407
  9. AZUNOL [Concomitant]
     Indication: PROPHYLAXIS
     Route: 049
     Dates: start: 20110407

REACTIONS (1)
  - HYPONATRAEMIA [None]
